FAERS Safety Report 4741442-4 (Version None)
Quarter: 2005Q3

REPORT INFORMATION
  Report Type: 
  Country: None (occurrence: None)
  Receive Date: 20050808
  Receipt Date: 20050728
  Transmission Date: 20060218
  Serious: Yes (Other)
  Sender: FDA-Public Use
  Company Number: 2005108139

PATIENT
  Sex: Male
  Weight: 68.0396 kg

DRUGS (7)
  1. LIPITOR [Suspect]
     Indication: BLOOD CHOLESTEROL INCREASED
     Dosage: 10 MG (10 MG, 1 IN 1 D)
     Dates: start: 20010101, end: 20020101
  2. BENADRYL [Suspect]
     Indication: ILL-DEFINED DISORDER
  3. VITAMINS (VITAMINS) [Concomitant]
  4. VITAMIN C (VITAMIN C) [Concomitant]
  5. VITAMIN D (VITAMIN D) [Concomitant]
  6. VITAMIN E [Concomitant]
  7. COENZYME Q10 [Concomitant]

REACTIONS (36)
  - ABDOMINAL PAIN LOWER [None]
  - ADRENOCORTICAL INSUFFICIENCY CHRONIC [None]
  - AGEUSIA [None]
  - ASTHENIA [None]
  - BACK PAIN [None]
  - BOWEL MOVEMENT IRREGULARITY [None]
  - BURNING SENSATION [None]
  - CHROMATURIA [None]
  - DRUG HYPERSENSITIVITY [None]
  - GINGIVAL DISORDER [None]
  - HYPERAESTHESIA [None]
  - INFLAMMATION [None]
  - INFLUENZA [None]
  - IRRITABLE BOWEL SYNDROME [None]
  - JAUNDICE [None]
  - LIVER SCAN ABNORMAL [None]
  - LOSS OF CONSCIOUSNESS [None]
  - METABOLIC DISORDER [None]
  - MUSCLE DISORDER [None]
  - MUSCLE SPASMS [None]
  - MYALGIA [None]
  - NAIL DISORDER [None]
  - ORAL INTAKE REDUCED [None]
  - PAIN [None]
  - PAIN IN EXTREMITY [None]
  - PAIN OF SKIN [None]
  - PARAESTHESIA [None]
  - RENAL PAIN [None]
  - RHABDOMYOLYSIS [None]
  - SKIN DISORDER [None]
  - SKIN HAEMORRHAGE [None]
  - TONGUE DISCOLOURATION [None]
  - TONGUE DISORDER [None]
  - TREMOR [None]
  - URTICARIA [None]
  - WEIGHT DECREASED [None]
